FAERS Safety Report 7954059-5 (Version None)
Quarter: 2011Q4

REPORT INFORMATION
  Report Type: 
  Country: None (occurrence: None)
  Receive Date: 20111202
  Receipt Date: 20111128
  Transmission Date: 20120403
  Serious: Yes (Disabling, Other)
  Sender: FDA-Public Use
  Company Number: US-CELGENEUS-163-21880-11083417

PATIENT
  Sex: Male
  Weight: 77.18 kg

DRUGS (19)
  1. REVLIMID [Suspect]
     Dosage: 10 MILLIGRAM
     Route: 048
     Dates: start: 20110524
  2. LISINOPRIL [Concomitant]
     Dosage: 20 MILLIGRAM
     Route: 048
  3. DEXAMETHASONE [Concomitant]
     Dosage: 4 MILLIGRAM
     Route: 048
  4. FAMCICLOVIR [Concomitant]
     Dosage: 500 MILLIGRAM
     Route: 048
  5. ENOXAPARIN [Concomitant]
     Dosage: 120MG/0.8ML
     Route: 065
  6. SIMVASTATIN [Concomitant]
     Dosage: 20 MILLIGRAM
     Route: 048
  7. VALIUM [Concomitant]
     Dosage: 5 MILLIGRAM
     Route: 048
  8. SALMON OIL [Concomitant]
     Indication: SUPPLEMENTATION THERAPY
     Route: 048
  9. ZYRTEC [Concomitant]
     Dosage: 10 MILLIGRAM
     Route: 048
  10. LORATADINE [Concomitant]
     Dosage: 10 MILLIGRAM
     Route: 048
  11. FLORASTOR [Concomitant]
     Route: 048
  12. L-CARNITINE [Concomitant]
     Dosage: 250 MILLIGRAM
     Route: 048
  13. REVLIMID [Suspect]
     Indication: MULTIPLE MYELOMA
     Dosage: 10 MILLIGRAM
     Route: 048
     Dates: start: 20110315
  14. FOLIC ACID [Concomitant]
     Dosage: 800 MICROGRAM
     Route: 048
  15. ZOMETA [Concomitant]
     Route: 065
  16. DOCUSATE SODIUM [Concomitant]
     Dosage: 100 MILLIGRAM
     Route: 048
  17. ALPHA-LIPOIC ACID [Concomitant]
     Dosage: 400 MILLIGRAM
     Route: 048
  18. CHERATUSSIN AC [Concomitant]
     Indication: COUGH
     Dosage: 10MG/5ML
     Route: 048
  19. VITAMIN D [Concomitant]
     Dosage: 1000 UNITS
     Route: 048

REACTIONS (3)
  - OSTEOLYSIS [None]
  - OEDEMA PERIPHERAL [None]
  - DEEP VEIN THROMBOSIS [None]
